FAERS Safety Report 10901523 (Version 1)
Quarter: 2015Q1

REPORT INFORMATION
  Report Type: Spontaneous
  Country: US (occurrence: None)
  Receive Date: 20150303
  Receipt Date: 20150303
  Transmission Date: 20150721
  Serious: Yes (Hospitalization)
  Sender: FDA-Public Use
  Company Number: None

PATIENT
  Age: 68 Year
  Sex: Male
  Weight: 100.5 kg

DRUGS (2)
  1. VANCOMYCIN [Suspect]
     Active Substance: VANCOMYCIN
     Indication: OSTEOMYELITIS
     Route: 042
     Dates: start: 20141224, end: 20150125
  2. CEFEPIME [Suspect]
     Active Substance: CEFEPIME\CEFEPIME HYDROCHLORIDE
     Indication: OSTEOMYELITIS
     Route: 042
     Dates: start: 20150111, end: 20150125

REACTIONS (5)
  - Stevens-Johnson syndrome [None]
  - Angioedema [None]
  - Pyrexia [None]
  - Toxic epidermal necrolysis [None]
  - Drug hypersensitivity [None]

NARRATIVE: CASE EVENT DATE: 20150125
